FAERS Safety Report 8251224-7 (Version None)
Quarter: 2012Q2

REPORT INFORMATION
  Report Type: 
  Country: None (occurrence: None)
  Receive Date: 20120402
  Receipt Date: 20120328
  Transmission Date: 20120825
  Serious: Yes (Other)
  Sender: FDA-Public Use
  Company Number: DE-SANOFI-AVENTIS-2012SA021639

PATIENT
  Age: 27 Year
  Sex: Female
  Weight: 45 kg

DRUGS (1)
  1. FERRLECIT [Suspect]
     Route: 042
     Dates: start: 20110913, end: 20110920

REACTIONS (2)
  - CIRCULATORY COLLAPSE [None]
  - BLOOD PRESSURE DECREASED [None]
